FAERS Safety Report 4836651-X (Version None)
Quarter: 2005Q4

REPORT INFORMATION
  Report Type: 
  Country: None (occurrence: None)
  Receive Date: 20051121
  Receipt Date: 20051107
  Transmission Date: 20060501
  Serious: Yes (Other)
  Sender: FDA-Public Use
  Company Number: 2005142589

PATIENT
  Age: 28 Year
  Sex: Female
  Weight: 55 kg

DRUGS (3)
  1. DIFLUCAN [Suspect]
     Indication: VAGINAL CANDIDIASIS
     Dosage: ORAL
     Route: 048
  2. TEGRETOL [Concomitant]
  3. PHENETURIDE (PHENETURIDE) [Concomitant]

REACTIONS (4)
  - DELIRIUM [None]
  - DRUG INTERACTION [None]
  - EPILEPSY [None]
  - MENTAL DISORDER [None]
